FAERS Safety Report 5241285-1 (Version None)
Quarter: 2007Q1

REPORT INFORMATION
  Report Type: 
  Country: None (occurrence: None)
  Receive Date: 20070215
  Receipt Date: 20070215
  Transmission Date: 20070707
  Serious: No
  Sender: FDA-Public Use
  Company Number: None

PATIENT
  Sex: Female

DRUGS (1)
  1. MAGNEVIST [Suspect]
     Indication: ANGIOGRAM
     Dosage: 40ML ONE TIME IV
     Route: 042
     Dates: start: 20030716, end: 20030716

REACTIONS (2)
  - NEPHROGENIC FIBROSING DERMOPATHY [None]
  - RASH [None]
